FAERS Safety Report 19286206 (Version 1)
Quarter: 2021Q2

REPORT INFORMATION
  Report Type: Report from Study
  Country: GB (occurrence: GB)
  Receive Date: 20210521
  Receipt Date: 20210521
  Transmission Date: 20210717
  Serious: Yes (Other)
  Sender: FDA-Public Use
  Company Number: PHHY2018GB046429

PATIENT
  Age: 76 Year
  Sex: Female

DRUGS (6)
  1. SANDOSTATIN LAR DEPOT [Suspect]
     Active Substance: OCTREOTIDE ACETATE
     Dosage: 30 MG, QMO
     Route: 030
  2. SANDOSTATIN LAR DEPOT [Suspect]
     Active Substance: OCTREOTIDE ACETATE
  3. WARFARIN [Concomitant]
     Active Substance: WARFARIN
     Indication: PRODUCT USED FOR UNKNOWN INDICATION
     Dosage: UNK
     Route: 065
  4. BISOPROLOL [Concomitant]
     Active Substance: BISOPROLOL
     Indication: PRODUCT USED FOR UNKNOWN INDICATION
     Dosage: 5 MG, QD
     Route: 065
  5. BISOPROLOL [Concomitant]
     Active Substance: BISOPROLOL
     Dosage: 10 MG, QD
     Route: 065
  6. SANDOSTATIN LAR DEPOT [Suspect]
     Active Substance: OCTREOTIDE ACETATE
     Indication: NEUROENDOCRINE TUMOUR
     Dosage: 30 MG, QMO (EVERY 4 WEEKS)
     Route: 030
     Dates: start: 20171121

REACTIONS (27)
  - Erythema [Unknown]
  - Pain in extremity [Unknown]
  - Injection site fibrosis [Recovering/Resolving]
  - Diarrhoea [Not Recovered/Not Resolved]
  - Fall [Unknown]
  - Flushing [Unknown]
  - Abdominal pain [Not Recovered/Not Resolved]
  - Diabetes mellitus [Unknown]
  - Stress [Unknown]
  - Musculoskeletal stiffness [Unknown]
  - Purulence [Unknown]
  - Lymphadenopathy [Recovered/Resolved]
  - Skin hypertrophy [Unknown]
  - Arthralgia [Unknown]
  - Nausea [Unknown]
  - Dizziness [Recovered/Resolved]
  - Chest pain [Unknown]
  - Skin fissures [Unknown]
  - Blood glucose decreased [Recovered/Resolved]
  - Needle issue [Unknown]
  - Anxiety [Unknown]
  - Abscess [Unknown]
  - Illness [Recovering/Resolving]
  - Constipation [Unknown]
  - Vomiting [Unknown]
  - Hand fracture [Unknown]
  - Abdominal discomfort [Recovering/Resolving]

NARRATIVE: CASE EVENT DATE: 20190317
